FAERS Safety Report 5110067-3 (Version None)
Quarter: 2006Q3

REPORT INFORMATION
  Report Type: 
  Country: None (occurrence: None)
  Receive Date: 20060919
  Receipt Date: 20060919
  Transmission Date: 20061208
  Serious: Yes (Life-Threatening)
  Sender: FDA-Public Use
  Company Number: None

PATIENT
  Age: 54 Year
  Sex: Male
  Weight: 74.3899 kg

DRUGS (2)
  1. HUMULIN N [Suspect]
     Indication: DIABETES MELLITUS
     Dosage: 23 UNITS   ONCE A DAY
     Dates: start: 20060401, end: 20060918
  2. HUMULIN R [Suspect]
     Dosage: 8 UNITS    ONCE A DAY
     Dates: start: 20060401, end: 20060918

REACTIONS (1)
  - HYPOGLYCAEMIA UNAWARENESS [None]
